FAERS Safety Report 7258983-0 (Version None)
Quarter: 2011Q1

REPORT INFORMATION
  Report Type: 
  Country: None (occurrence: None)
  Receive Date: 20110129
  Receipt Date: 20100618
  Transmission Date: 20110831
  Serious: No
  Sender: FDA-Public Use
  Company Number: US-ABBOTT-10P-163-0653144-00

PATIENT
  Sex: Female
  Weight: 70.37 kg

DRUGS (15)
  1. PROPEFENONE [Concomitant]
     Indication: CARDIAC DISORDER
     Dosage: 1 1/2 TABS  TID
     Route: 048
  2. AZATHIOPRINE [Concomitant]
     Indication: PRODUCT USED FOR UNKNOWN INDICATION
     Route: 048
  3. LISINOPRIL AND HYDROCHLOROTHIAZIDE [Concomitant]
     Indication: HYPERTENSION
     Dosage: 20/12.5  2DAILY
     Route: 048
  4. DARVOCET-N 100 [Concomitant]
     Indication: ARTHRALGIA
     Route: 048
  5. MULTI-VITAMIN [Concomitant]
     Indication: VITAMIN SUPPLEMENTATION
     Route: 048
  6. PREDNISONE [Concomitant]
     Indication: PRODUCT USED FOR UNKNOWN INDICATION
     Route: 048
  7. HUMIRA [Suspect]
     Indication: RHEUMATOID ARTHRITIS
     Route: 058
  8. LEVOTHYROXINE SODIUM [Concomitant]
     Indication: HYPOTHYROIDISM
     Route: 048
  9. CALTRATE [Concomitant]
     Indication: MINERAL SUPPLEMENTATION
     Route: 048
  10. PRILOSEC [Concomitant]
     Indication: GASTRIC DISORDER
     Route: 048
  11. WARFARIN SODIUM [Concomitant]
     Indication: CEREBROVASCULAR ACCIDENT
     Dosage: 6MG X5 DAYS AND 3MG BIWEEKLY
     Route: 048
  12. CITALOPRAM [Concomitant]
     Indication: ANXIETY
     Dosage: 1/2 HS
     Route: 048
  13. PROPEFENONE [Concomitant]
     Indication: CEREBROVASCULAR ACCIDENT
  14. ASPIRIN [Concomitant]
     Indication: PRODUCT USED FOR UNKNOWN INDICATION
     Route: 048
  15. CRESTOR [Concomitant]
     Indication: BLOOD CHOLESTEROL INCREASED
     Route: 048

REACTIONS (2)
  - LACERATION [None]
  - WOUND INFECTION STAPHYLOCOCCAL [None]
